FAERS Safety Report 23510670 (Version 1)
Quarter: 2024Q1

REPORT INFORMATION
  Report Type: Spontaneous
  Country: US (occurrence: US)
  Receive Date: 20240211
  Receipt Date: 20240211
  Transmission Date: 20240410
  Serious: No
  Sender: FDA-Public Use
  Company Number: US-AIMMUNE THERAPEUTICS, INC.-2024AIMT00101

PATIENT

DRUGS (6)
  1. PALFORZIA [Suspect]
     Active Substance: PEANUT
     Indication: Food allergy
     Dosage: IDE (0.5-6MG), ONCE
     Route: 048
  2. PALFORZIA [Suspect]
     Active Substance: PEANUT
     Dosage: 80 MG, 1X/DAY
     Route: 048
     Dates: start: 20240104
  3. PALFORZIA [Suspect]
     Active Substance: PEANUT
     Dosage: 80 MG, ONCE, LAST DOSE PRIOR TO EVENT
     Route: 048
  4. CEFDINIR [Concomitant]
     Active Substance: CEFDINIR
     Indication: Product used for unknown indication
     Dosage: 125/5ML
  5. EPINEPHRINE [Concomitant]
     Active Substance: EPINEPHRINE
     Indication: Product used for unknown indication
     Dosage: 0.15 MG
  6. CHILDRENS CHEWABLE VITAMINS [Concomitant]
     Indication: Product used for unknown indication
     Dosage: 0.5 MG

REACTIONS (1)
  - Influenza [Not Recovered/Not Resolved]
